FAERS Safety Report 12735387 (Version 1)
Quarter: 2016Q3

REPORT INFORMATION
  Report Type: Spontaneous
  Country: US (occurrence: US)
  Receive Date: 20160912
  Receipt Date: 20160912
  Transmission Date: 20161109
  Serious: No
  Sender: FDA-Public Use
  Company Number: US-GLENMARK PHARMACEUTICALS INC, USA.-2016GMK022496

PATIENT
  Age: 49 Year
  Sex: Female

DRUGS (6)
  1. DANTROLENE [Concomitant]
     Active Substance: DANTROLENE
     Indication: ARTERIOVENOUS MALFORMATION
     Dosage: UNK
  2. NORTRIPTYLINE [Concomitant]
     Active Substance: NORTRIPTYLINE
     Indication: ARTERIOVENOUS MALFORMATION
     Dosage: UNK
  3. CYPROHEPTADINE. [Concomitant]
     Active Substance: CYPROHEPTADINE
     Indication: ARTERIOVENOUS MALFORMATION
  4. GABAPENTIN. [Suspect]
     Active Substance: GABAPENTIN
     Indication: ARTERIOVENOUS MALFORMATION
     Dosage: UNK
  5. MORPHINE [Concomitant]
     Active Substance: MORPHINE
     Indication: ARTERIOVENOUS MALFORMATION
     Dosage: 0.076 MG, QD
     Route: 037
  6. BACLOFEN. [Concomitant]
     Active Substance: BACLOFEN
     Indication: ARTERIOVENOUS MALFORMATION
     Dosage: 385 ?G, QD

REACTIONS (1)
  - Drug ineffective for unapproved indication [Unknown]
